FAERS Safety Report 11783695 (Version 1)
Quarter: 2015Q4

REPORT INFORMATION
  Report Type: Spontaneous
  Country: DE (occurrence: DE)
  Receive Date: 20151127
  Receipt Date: 20151127
  Transmission Date: 20160305
  Serious: Yes (Other)
  Sender: FDA-Public Use
  Company Number: DE-009507513-1511DEU012521

PATIENT
  Age: 61 Year
  Sex: Male
  Weight: 114 kg

DRUGS (4)
  1. MIRTAZAPIN STADA [Suspect]
     Active Substance: MIRTAZAPINE
     Dosage: 15 MG, QD, DRUG INTAKE FOR MANY YEARS
     Route: 048
     Dates: start: 2012, end: 20150330
  2. VENLAFAXINE HYDROCHLORIDE. [Suspect]
     Active Substance: VENLAFAXINE HYDROCHLORIDE
     Dosage: 150 MG, QD
     Route: 048
     Dates: start: 2012
  3. MIRTAZAPIN STADA [Suspect]
     Active Substance: MIRTAZAPINE
     Dosage: 7.5 MG, AT NIGHT
     Route: 048
     Dates: start: 20150331, end: 20150406
  4. VENLAFAXINE HYDROCHLORIDE. [Suspect]
     Active Substance: VENLAFAXINE HYDROCHLORIDE
     Dosage: 300 MG, QD
     Route: 048
     Dates: start: 2012

REACTIONS (2)
  - Weight increased [Not Recovered/Not Resolved]
  - Drug withdrawal syndrome [Recovered/Resolved]

NARRATIVE: CASE EVENT DATE: 20150402
